FAERS Safety Report 7117831-X (Version None)
Quarter: 2010Q4

REPORT INFORMATION
  Report Type: 
  Country: None (occurrence: None)
  Receive Date: 20101118
  Receipt Date: 20101118
  Transmission Date: 20110411
  Serious: No
  Sender: FDA-Public Use
  Company Number: None

PATIENT
  Age: 79 Year
  Sex: Female
  Weight: 47.1741 kg

DRUGS (1)
  1. MEGACE [Suspect]

REACTIONS (3)
  - DYSPNOEA [None]
  - FATIGUE [None]
  - PAIN IN EXTREMITY [None]
